FAERS Safety Report 6732587-8 (Version None)
Quarter: 2010Q2

REPORT INFORMATION
  Report Type: 
  Country: None (occurrence: None)
  Receive Date: 20100519
  Receipt Date: 20100506
  Transmission Date: 20101027
  Serious: Yes (Other)
  Sender: FDA-Public Use
  Company Number: PHHY2010US29514

PATIENT
  Sex: Female

DRUGS (3)
  1. DIOVAN [Suspect]
     Dosage: UNK
     Dates: start: 20071001
  2. DIOVAN [Suspect]
     Dosage: UNK
     Dates: start: 20080701
  3. EXFORGE [Suspect]
     Dosage: UNK
     Dates: start: 20080701

REACTIONS (3)
  - CHEST PAIN [None]
  - CIRCULATORY COLLAPSE [None]
  - MALAISE [None]
